FAERS Safety Report 7794989-0 (Version None)
Quarter: 2011Q4

REPORT INFORMATION
  Report Type: 
  Country: None (occurrence: None)
  Receive Date: 20111004
  Receipt Date: 20110928
  Transmission Date: 20120403
  Serious: Yes (Life-Threatening, Hospitalization, Other)
  Sender: FDA-Public Use
  Company Number: PHHY2011DE86650

PATIENT
  Age: 40 Year
  Sex: Male

DRUGS (1)
  1. RITALIN LA [Suspect]
     Dosage: NEARLY 300 MG DAILY
     Route: 048
     Dates: start: 20080401, end: 20110714

REACTIONS (1)
  - RENAL FAILURE ACUTE [None]
